FAERS Safety Report 9278586 (Version 1)
Quarter: 2013Q2

REPORT INFORMATION
  Report Type: Spontaneous
  Country: US (occurrence: US)
  Receive Date: 20130508
  Receipt Date: 20130508
  Transmission Date: 20140414
  Serious: No
  Sender: FDA-Public Use
  Company Number: US-PFIZER INC-2013140509

PATIENT
  Age: 53 Year
  Sex: Female
  Weight: 88.44 kg

DRUGS (10)
  1. XELJANZ [Suspect]
     Dosage: 5 MG, 2X/DAY (TAKE 1 TABLET)
     Route: 048
  2. FISH OIL [Concomitant]
     Dosage: UNK
  3. NEURONTIN [Concomitant]
     Dosage: 100 MG, UNK
  4. MOBIC [Concomitant]
     Dosage: 7.5 MG, UNK
  5. FOLIC ACID [Concomitant]
     Dosage: UNK
  6. CYCLOBENZAPRINE [Concomitant]
     Dosage: UNK
  7. LORTAB [Concomitant]
     Dosage: 5 TABLET
  8. IBUPROFEN [Concomitant]
     Dosage: 200 MG, UNK
  9. VITAMIN B12 [Concomitant]
     Dosage: UNK
  10. CALCIUM [Concomitant]
     Dosage: UNK (500 TAB)

REACTIONS (2)
  - Chest pain [Unknown]
  - Dizziness [Unknown]
